FAERS Safety Report 26028618 (Version 1)
Quarter: 2025Q4

REPORT INFORMATION
  Report Type: Report from Study
  Country: US (occurrence: US)
  Receive Date: 20251111
  Receipt Date: 20251111
  Transmission Date: 20260118
  Serious: Yes (Other)
  Sender: ABBVIE
  Company Number: US-ABBVIE-6510707

PATIENT
  Sex: Female

DRUGS (2)
  1. IMBRUVICA [Suspect]
     Active Substance: IBRUTINIB
     Indication: Chronic lymphocytic leukaemia
     Dosage: 420 TABLETS?DISCONTINUED FOR FEW WEEKS
     Route: 048
     Dates: end: 2023
  2. IMBRUVICA [Suspect]
     Active Substance: IBRUTINIB
     Indication: Chronic lymphocytic leukaemia
     Dosage: 420 TABLETS?RESTARTED
     Route: 048

REACTIONS (5)
  - Tooth extraction [Unknown]
  - Nausea [Not Recovered/Not Resolved]
  - Contusion [Unknown]
  - Post procedural haemorrhage [Unknown]
  - Contusion [Recovered/Resolved]

NARRATIVE: CASE EVENT DATE: 20230101
